FAERS Safety Report 15320635 (Version 1)
Quarter: 2018Q3

REPORT INFORMATION
  Report Type: Spontaneous
  Country: US (occurrence: US)
  Receive Date: 20180821
  Receipt Date: 20180821
  Transmission Date: 20181010
  Serious: No
  Sender: FDA-Public Use
  Company Number: None

PATIENT
  Age: 60 Year
  Sex: Female
  Weight: 73.8 kg

DRUGS (8)
  1. CEPHALEXIN. [Concomitant]
     Active Substance: CEPHALEXIN
  2. CAPECITABINE. [Suspect]
     Active Substance: CAPECITABINE
     Indication: BREAST CANCER
     Dates: start: 20180726, end: 20180801
  3. HYDROMORPHONE [Concomitant]
     Active Substance: HYDROMORPHONE
  4. FENTANYL. [Concomitant]
     Active Substance: FENTANYL
  5. ONDANSETRON [Concomitant]
     Active Substance: ONDANSETRON
  6. METOCLOPRAMIDE. [Concomitant]
     Active Substance: METOCLOPRAMIDE
  7. OMEPRAZOLE. [Concomitant]
     Active Substance: OMEPRAZOLE
  8. GAS RELIEF [Concomitant]
     Active Substance: DIMETHICONE

REACTIONS (2)
  - Vomiting [None]
  - Nausea [None]

NARRATIVE: CASE EVENT DATE: 20180801
